FAERS Safety Report 24299321 (Version 2)
Quarter: 2024Q3

REPORT INFORMATION
  Report Type: Report from Study
  Country: NL (occurrence: None)
  Receive Date: 20240909
  Receipt Date: 20240920
  Transmission Date: 20241016
  Serious: Yes (Hospitalization)
  Sender: MDD OPERATIONS
  Company Number: NL-MDD US Operations-MDD202409-003264

PATIENT
  Age: 74 Year
  Sex: Female

DRUGS (15)
  1. APOMORPHINE HYDROCHLORIDE [Suspect]
     Active Substance: APOMORPHINE HYDROCHLORIDE
     Indication: Parkinson^s disease
     Dosage: (=2.2MG/ HOUR)
     Route: 058
     Dates: start: 20180108
  2. APOMORPHINE HYDROCHLORIDE [Suspect]
     Active Substance: APOMORPHINE HYDROCHLORIDE
     Dosage: (=3.72MG/ HOUR)
     Route: 058
     Dates: start: 20180108
  3. APOMORPHINE HYDROCHLORIDE [Suspect]
     Active Substance: APOMORPHINE HYDROCHLORIDE
     Dosage: (=1.4MG/ HOUR)
     Route: 058
     Dates: start: 20180108
  4. APOMORPHINE HYDROCHLORIDE [Suspect]
     Active Substance: APOMORPHINE HYDROCHLORIDE
     Dosage: BOLUS: (=1MG)
     Route: 058
     Dates: start: 20180108, end: 20240820
  5. CARBIDOPA\LEVODOPA [Concomitant]
     Active Substance: CARBIDOPA\LEVODOPA
     Dosage: EACH DF CONTAINS 50/12.5 MG
  6. BENSERAZIDE\LEVODOPA [Concomitant]
     Active Substance: BENSERAZIDE\LEVODOPA
     Dosage: EACH DF CONTAINS 100-25 MG
  7. BENSERAZIDE\LEVODOPA [Concomitant]
     Active Substance: BENSERAZIDE\LEVODOPA
     Dosage: EACH DF CONTAINS 100/25 MG, 4D0, 25T WHEN NEEDED
  8. FOLIC ACID [Concomitant]
     Active Substance: FOLIC ACID
  9. Macrogol/ Salt [Concomitant]
     Dosage: (MOVIC/MOLAX/GEN CITR)
     Route: 048
  10. PREDNISOLONE [Concomitant]
     Active Substance: PREDNISOLONE
  11. CHLORTHALIDONE [Concomitant]
     Active Substance: CHLORTHALIDONE
  12. BROMFENAC [Concomitant]
     Active Substance: BROMFENAC
     Dosage: 0.9 MG/ML FL 5 ML BENZALKONI
  13. NORTRIPTYLINE [Concomitant]
     Active Substance: NORTRIPTYLINE
  14. TEMAZEPAM [Concomitant]
     Active Substance: TEMAZEPAM
  15. PANTOPRAZOLE [Concomitant]
     Active Substance: PANTOPRAZOLE

REACTIONS (1)
  - Haemolytic anaemia [Recovered/Resolved]

NARRATIVE: CASE EVENT DATE: 20240801
